FAERS Safety Report 8573312-8 (Version None)
Quarter: 2012Q3

REPORT INFORMATION
  Report Type: 
  Country: None (occurrence: None)
  Receive Date: 20120806
  Receipt Date: 20120727
  Transmission Date: 20120928
  Serious: Yes (Hospitalization)
  Sender: FDA-Public Use
  Company Number: US-ASTRAZENECA-2012SE53495

PATIENT
  Age: 79 Year
  Sex: Female
  Weight: 90.7 kg

DRUGS (4)
  1. SYMBICORT [Suspect]
     Indication: EMPHYSEMA
     Dosage: 160/4.5 MCG, 2 PUFFS, BID
     Route: 055
     Dates: start: 20090101
  2. PRADAXA [Concomitant]
  3. XOPENEX [Concomitant]
     Dosage: PRN
  4. SPIRIVA [Concomitant]

REACTIONS (2)
  - ATRIAL FIBRILLATION [None]
  - DYSPHONIA [None]
